FAERS Safety Report 9935057 (Version 4)
Quarter: 2014Q2

REPORT INFORMATION
  Report Type: Spontaneous
  Country: DE (occurrence: DE)
  Receive Date: 20140228
  Receipt Date: 20140404
  Transmission Date: 20141212
  Serious: Yes (Other)
  Sender: FDA-Public Use
  Company Number: DE-PFIZER INC-2014042402

PATIENT
  Age: 70 Year
  Sex: Male
  Weight: 80 kg

DRUGS (3)
  1. XALATAN [Suspect]
     Indication: GLAUCOMA
     Dosage: UNK
     Route: 047
  2. XALATAN [Suspect]
     Dosage: ADMINISTERED INTO CONJUNCTIVAL SAC
     Route: 047
     Dates: start: 20140206, end: 20140213
  3. XALATAN [Suspect]
     Dosage: ADMINISTERED INTO CONJUNCTIVAL SAC
     Route: 047
     Dates: start: 20140213

REACTIONS (5)
  - Visual impairment [Not Recovered/Not Resolved]
  - Product formulation issue [Not Recovered/Not Resolved]
  - Eye irritation [Recovering/Resolving]
  - Ocular hyperaemia [Not Recovered/Not Resolved]
  - Lacrimation increased [Not Recovered/Not Resolved]
